FAERS Safety Report 16022985 (Version 2)
Quarter: 2019Q4

REPORT INFORMATION
  Report Type: Spontaneous
  Country: US (occurrence: US)
  Receive Date: 20190301
  Receipt Date: 20191120
  Transmission Date: 20200122
  Serious: Yes (Hospitalization, Other)
  Sender: FDA-Public Use
  Company Number: US-ELI_LILLY_AND_COMPANY-US201902009635

PATIENT
  Age: 63 Year
  Sex: Male

DRUGS (2)
  1. HUMALOG [Suspect]
     Active Substance: INSULIN LISPRO
     Indication: TYPE 1 DIABETES MELLITUS
     Dosage: 150 INTERNATIONAL UNIT, UNKNOWN
     Route: 058
     Dates: start: 2000
  2. HUMALOG [Suspect]
     Active Substance: INSULIN LISPRO
     Dosage: 100 INTERNATIONAL UNIT, DAILY
     Route: 058

REACTIONS (4)
  - Myopathy [Not Recovered/Not Resolved]
  - Polymyositis [Not Recovered/Not Resolved]
  - Myocardial infarction [Recovered/Resolved]
  - Insulin resistance [Unknown]

NARRATIVE: CASE EVENT DATE: 2006
